FAERS Safety Report 5706622-X (Version None)
Quarter: 2008Q2

REPORT INFORMATION
  Report Type: 
  Country: None (occurrence: None)
  Receive Date: 20080414
  Receipt Date: 20020530
  Transmission Date: 20081010
  Serious: Yes (Death)
  Sender: FDA-Public Use
  Company Number: 2002IC000206

PATIENT
  Age: 50 Year
  Sex: Male

DRUGS (4)
  1. ANCOTIL (FLUCYTOSINE) [Suspect]
     Indication: CANDIDIASIS
     Dosage: 10 GM; IV, 7.5 GM; IV, 5.0 GM; IV
     Route: 042
     Dates: start: 20020419, end: 20020424
  2. ANCOTIL (FLUCYTOSINE) [Suspect]
     Indication: CANDIDIASIS
     Dosage: 10 GM; IV, 7.5 GM; IV, 5.0 GM; IV
     Route: 042
     Dates: start: 20020419, end: 20020424
  3. ANCOTIL (FLUCYTOSINE) [Suspect]
     Indication: CANDIDIASIS
     Dosage: 10 GM; IV, 7.5 GM; IV, 5.0 GM; IV
     Route: 042
     Dates: start: 20020424, end: 20020425
  4. AMPHOTERICIN B [Suspect]
     Indication: CANDIDIASIS
     Dosage: 30 MG; IV
     Route: 042
     Dates: start: 20020419, end: 20020425

REACTIONS (7)
  - CONDITION AGGRAVATED [None]
  - FLUID OVERLOAD [None]
  - FUNGAL INFECTION [None]
  - HEPATIC FUNCTION ABNORMAL [None]
  - NEUTROPENIA [None]
  - SEPSIS [None]
  - THROMBOCYTOPENIA [None]
